FAERS Safety Report 13234158 (Version 1)
Quarter: 2017Q1

REPORT INFORMATION
  Report Type: Spontaneous
  Country: US (occurrence: US)
  Receive Date: 20170215
  Receipt Date: 20170215
  Transmission Date: 20170428
  Serious: Yes (Disabling)
  Sender: FDA-Public Use
  Company Number: None

PATIENT
  Age: 3 Year
  Sex: Female
  Weight: 18 kg

DRUGS (10)
  1. MAFOS [Concomitant]
  2. TRILEPTAL [Concomitant]
     Active Substance: OXCARBAZEPINE
  3. ZANTAC [Concomitant]
     Active Substance: RANITIDINE HYDROCHLORIDE
  4. HEMP BASED CBD OIL [Concomitant]
  5. ROBINUL [Concomitant]
     Active Substance: GLYCOPYRROLATE
  6. BACLOFEN. [Concomitant]
     Active Substance: BACLOFEN
  7. MELATONIN [Concomitant]
     Active Substance: MELATONIN
  8. MIRALAX [Suspect]
     Active Substance: POLYETHYLENE GLYCOL 3350
     Indication: CONSTIPATION
     Dosage: 1 CAP FULL VIA GTUBE?
  9. WHEELCHAIR [Concomitant]
     Active Substance: DEVICE
  10. POLYVISOL [Concomitant]

REACTIONS (2)
  - Intentional self-injury [None]
  - Anger [None]

NARRATIVE: CASE EVENT DATE: 20170124
